FAERS Safety Report 10748343 (Version 1)
Quarter: 2015Q1

REPORT INFORMATION
  Report Type: Spontaneous
  Country: US (occurrence: None)
  Receive Date: 20150120
  Receipt Date: 20150120
  Transmission Date: 20150721
  Serious: No
  Sender: FDA-Public Use
  Company Number: AEGR001017

PATIENT
  Age: 70 Year
  Sex: Male
  Weight: 86.2 kg

DRUGS (8)
  1. OMEGA 3 6 9 (OMEGA 9 FATTY ACIDS, OMEGA-3 FATTY ACIDS, OMEGA-6 FATTY ACIDS) [Concomitant]
  2. VITAMIN E (VITAMIN E) [Concomitant]
  3. JUXTAPID [Suspect]
     Active Substance: LOMITAPIDE MESYLATE
     Indication: TYPE IIA HYPERLIPIDAEMIA
     Route: 048
     Dates: start: 201408, end: 20140925
  4. INDOMETHACIN (INDOMETHACIN) [Concomitant]
  5. COLCRYS [Concomitant]
     Active Substance: COLCHICINE
  6. BENAZEPRIL HCL (BENAZEPRIL HYDROCHLORIDE) [Concomitant]
  7. FLAXSEED OIL (FLAXSEED OIL) [Concomitant]
  8. COQ10 (UBIDECARENONE) [Concomitant]
     Active Substance: UBIDECARENONE

REACTIONS (2)
  - Muscle fatigue [None]
  - Low density lipoprotein increased [None]
